FAERS Safety Report 16673420 (Version 3)
Quarter: 2019Q4

REPORT INFORMATION
  Report Type: Spontaneous
  Country: US (occurrence: US)
  Receive Date: 20190806
  Receipt Date: 20191112
  Transmission Date: 20200122
  Serious: No
  Sender: FDA-Public Use
  Company Number: US-PFIZER INC-2019334317

PATIENT
  Age: 74 Year
  Sex: Female
  Weight: 61.23 kg

DRUGS (2)
  1. METHOTREXATE SODIUM. [Suspect]
     Active Substance: METHOTREXATE SODIUM
     Dosage: 8 MG (0.8CC), WEEKLY
     Route: 058
     Dates: start: 20081209, end: 20190724
  2. METHOTREXATE SODIUM. [Suspect]
     Active Substance: METHOTREXATE SODIUM
     Dosage: 7 MG, WEEKLY

REACTIONS (3)
  - Product use issue [Unknown]
  - Off label use [Unknown]
  - Nausea [Unknown]
